FAERS Safety Report 8597832-5 (Version None)
Quarter: 2012Q3

REPORT INFORMATION
  Report Type: 
  Country: None (occurrence: None)
  Receive Date: 20120816
  Receipt Date: 20120810
  Transmission Date: 20120928
  Serious: Yes (Death, Hospitalization, Other)
  Sender: FDA-Public Use
  Company Number: NL-GENZYME-CLOF-1002229

PATIENT
  Sex: Male
  Weight: 66 kg

DRUGS (4)
  1. CYTARABINE [Suspect]
     Indication: ACUTE MYELOID LEUKAEMIA
     Dosage: 369.66 MG, UNK
     Route: 042
     Dates: start: 20120703
  2. IDARUBICIN HCL [Suspect]
     Indication: ACUTE MYELOID LEUKAEMIA
     Dosage: 22.18 MG, UNK
     Route: 042
     Dates: start: 20120703
  3. CLOFARABINE [Suspect]
     Indication: ACUTE MYELOID LEUKAEMIA
     Dosage: 18.48 MG, UNK
     Route: 042
     Dates: start: 20120703
  4. PIPERACILLIN W [Concomitant]
     Indication: PSEUDOMONAS INFECTION
     Dosage: 4500 MG, TID
     Route: 042
     Dates: start: 20120715

REACTIONS (5)
  - DYSPNOEA [None]
  - SEPSIS [None]
  - HEPATIC LESION [None]
  - RESPIRATORY FAILURE [None]
  - BRONCHOPULMONARY ASPERGILLOSIS [None]
